FAERS Safety Report 21909989 (Version 1)
Quarter: 2023Q1

REPORT INFORMATION
  Report Type: Spontaneous
  Country: US (occurrence: None)
  Receive Date: 20230125
  Receipt Date: 20230125
  Transmission Date: 20230418
  Serious: Yes (Other)
  Sender: FDA-Public Use
  Company Number: None

PATIENT
  Age: 26 Year
  Sex: Female
  Weight: 85.28 kg

DRUGS (2)
  1. MIRENA [Suspect]
     Active Substance: LEVONORGESTREL
     Dates: start: 20180103, end: 20220118
  2. UNSPECIFIED INGREDIENT [Suspect]
     Active Substance: UNSPECIFIED INGREDIENT

REACTIONS (7)
  - Pelvic pain [None]
  - Actinomyces test positive [None]
  - Smear cervix abnormal [None]
  - Stress [None]
  - Anxiety [None]
  - Enterococcus test positive [None]
  - Uterine infection [None]

NARRATIVE: CASE EVENT DATE: 20221116
